FAERS Safety Report 23816199 (Version 1)
Quarter: 2024Q2

REPORT INFORMATION
  Report Type: Spontaneous
  Country: CN (occurrence: CN)
  Receive Date: 20240503
  Receipt Date: 20240503
  Transmission Date: 20240715
  Serious: Yes (Hospitalization)
  Sender: FDA-Public Use
  Company Number: CN-ELI_LILLY_AND_COMPANY-CN202404017895

PATIENT
  Sex: Female

DRUGS (1)
  1. HUMALOG MIX75/25 [Suspect]
     Active Substance: INSULIN LISPRO
     Indication: Diabetes mellitus
     Dosage: 30 U, BID
     Route: 058
     Dates: start: 200904

REACTIONS (5)
  - Cardiac discomfort [Unknown]
  - Visual impairment [Unknown]
  - Malaise [Unknown]
  - Movement disorder [Unknown]
  - Incorrect dose administered [Unknown]
